FAERS Safety Report 14213721 (Version 2)
Quarter: 2020Q2

REPORT INFORMATION
  Report Type: Spontaneous
  Country: CA (occurrence: CA)
  Receive Date: 20171122
  Receipt Date: 20200514
  Transmission Date: 20200713
  Serious: Yes (Life-Threatening, Hospitalization)
  Sender: FDA-Public Use
  Company Number: CA-ROCHE-2024723

PATIENT
  Age: 36 Year
  Sex: Male

DRUGS (7)
  1. BORTEZOMIB. [Suspect]
     Active Substance: BORTEZOMIB
     Indication: IMMUNOSUPPRESSANT DRUG THERAPY
     Route: 042
  2. ACITRETIN. [Concomitant]
     Active Substance: ACITRETIN
     Route: 065
  3. CYCLOPHOSPHAMIDE. [Suspect]
     Active Substance: CYCLOPHOSPHAMIDE
     Indication: IMMUNOSUPPRESSANT DRUG THERAPY
     Dosage: FREQUENCY: TOTAL
     Route: 042
  4. N-ACETYLCYSTEINE [Suspect]
     Active Substance: ACETYLCYSTEINE
     Indication: THROMBOTIC THROMBOCYTOPENIC PURPURA
     Route: 042
  5. RITUXIMAB. [Suspect]
     Active Substance: RITUXIMAB
     Indication: IMMUNOSUPPRESSANT DRUG THERAPY
     Route: 065
  6. METHYLPREDNISOLONE. [Suspect]
     Active Substance: METHYLPREDNISOLONE
     Indication: IMMUNOSUPPRESSANT DRUG THERAPY
     Dosage: FREQUENCY: EVERY 1 DAY
     Route: 065
  7. CICLOSPORIN [Suspect]
     Active Substance: CYCLOSPORINE
     Indication: THROMBOTIC THROMBOCYTOPENIC PURPURA
     Dosage: FREQUENCY: EVERY 1 DAY
     Route: 048

REACTIONS (17)
  - Staphylococcal sepsis [Unknown]
  - Thrombotic thrombocytopenic purpura [Unknown]
  - Cerebrovascular accident [Unknown]
  - Drug ineffective [Unknown]
  - Muscular weakness [Unknown]
  - Brain oedema [Unknown]
  - Device related sepsis [Unknown]
  - Hemianopia [Unknown]
  - Clostridium difficile infection [Unknown]
  - Enterococcal infection [Unknown]
  - Off label use [Unknown]
  - Intentional product use issue [Unknown]
  - Klebsiella infection [Unknown]
  - Bacteraemia [Unknown]
  - Abdominal abscess [Unknown]
  - Empyema [Unknown]
  - Candida infection [Unknown]
